FAERS Safety Report 9132814 (Version 1)
Quarter: 2013Q1

REPORT INFORMATION
  Report Type: Spontaneous
  Country: US (occurrence: US)
  Receive Date: 20130107
  Receipt Date: 20130107
  Transmission Date: 20140127
  Serious: Yes (Hospitalization)
  Sender: FDA-Public Use
  Company Number: US-GENZYME-FABR-1002946

PATIENT
  Age: 65 None
  Sex: Male

DRUGS (2)
  1. FABRAZYME [Suspect]
     Indication: FABRY^S DISEASE
     Dosage: 90 MG, Q2W
     Route: 042
     Dates: start: 20050627
  2. UNSPECIFIED HEART MEDICATION [Concomitant]
     Indication: PRODUCT USED FOR UNKNOWN INDICATION
     Dosage: UNK

REACTIONS (3)
  - Hypertension [Unknown]
  - Ventricular extrasystoles [Unknown]
  - Medical device complication [Unknown]
